FAERS Safety Report 6928177-4 (Version None)
Quarter: 2010Q3

REPORT INFORMATION
  Report Type: 
  Country: None (occurrence: None)
  Receive Date: 20100817
  Receipt Date: 20100805
  Transmission Date: 20110219
  Serious: Yes (Other)
  Sender: FDA-Public Use
  Company Number: BR-GILEAD-2010-0030681

PATIENT
  Sex: Male
  Weight: 48.2 kg

DRUGS (9)
  1. VIREAD [Suspect]
     Indication: ANTIRETROVIRAL THERAPY
     Route: 048
     Dates: start: 20100622
  2. LAMIVUDINE [Suspect]
     Indication: ANTIRETROVIRAL THERAPY
     Dates: start: 20100622
  3. EFAVIRENZ [Suspect]
     Indication: ANTIRETROVIRAL THERAPY
     Dates: start: 20100622
  4. RIFAMPIN [Concomitant]
     Indication: TUBERCULOSIS
     Dates: start: 20100520
  5. ISONIAZID [Concomitant]
     Indication: TUBERCULOSIS
     Dates: start: 20100520
  6. PYRAZINAMIDE [Concomitant]
     Indication: TUBERCULOSIS
     Dates: start: 20100520, end: 20100720
  7. ETHAMBUTOL HYDROCHLORIDE [Concomitant]
     Indication: TUBERCULOSIS
     Dates: start: 20100520, end: 20100720
  8. BACTRIM [Concomitant]
     Indication: PROPHYLAXIS
     Dates: start: 20100622
  9. NORIPURUM FOLIC [Concomitant]
     Indication: ANAEMIA
     Dates: start: 20100706

REACTIONS (1)
  - PLATELET COUNT DECREASED [None]
